FAERS Safety Report 8336477-9 (Version None)
Quarter: 2012Q2

REPORT INFORMATION
  Report Type: 
  Country: None (occurrence: None)
  Receive Date: 20120504
  Receipt Date: 20120502
  Transmission Date: 20120825
  Serious: Yes (Death)
  Sender: FDA-Public Use
  Company Number: PHEH2012US009339

PATIENT
  Sex: Male

DRUGS (6)
  1. COREG [Concomitant]
     Dosage: 12.5 MG, UNK
  2. PLETAL [Concomitant]
     Dosage: 100 MG, UNK
  3. METFORMIN HCL [Concomitant]
     Dosage: 500 MG, UNK
  4. ZOMETA [Suspect]
     Dosage: 4 MG/ 5 ML EVERY 28 DAYS
     Route: 042
  5. LIPITOR [Concomitant]
     Dosage: 20 MG, UNK
  6. COZAAR [Concomitant]
     Dosage: 25 MG, UNK

REACTIONS (1)
  - DEATH [None]
